FAERS Safety Report 24147824 (Version 2)
Quarter: 2025Q3

REPORT INFORMATION
  Report Type: Report from Study
  Country: EU (occurrence: EU)
  Receive Date: 20240729
  Receipt Date: 20250729
  Transmission Date: 20251020
  Serious: Yes (Hospitalization)
  Sender: MYLAN
  Company Number: EU-EMA-DD-20240715-7482677-084326

PATIENT
  Age: 63 Year
  Sex: Male
  Weight: 65 kg

DRUGS (148)
  1. DIAZEPAM [Suspect]
     Active Substance: DIAZEPAM
     Indication: Restlessness
     Dosage: UNK, QD
     Dates: start: 19981107, end: 19981107
  2. DIAZEPAM [Suspect]
     Active Substance: DIAZEPAM
     Dosage: UNK, QD
     Route: 048
     Dates: start: 19981107, end: 19981107
  3. DIAZEPAM [Suspect]
     Active Substance: DIAZEPAM
     Dosage: UNK, QD
     Route: 048
     Dates: start: 19981107, end: 19981107
  4. DIAZEPAM [Suspect]
     Active Substance: DIAZEPAM
     Dosage: UNK, QD
     Dates: start: 19981107, end: 19981107
  5. AMOXICILLIN [Suspect]
     Active Substance: AMOXICILLIN
     Indication: Bronchitis
  6. AMOXICILLIN [Suspect]
     Active Substance: AMOXICILLIN
     Route: 048
  7. AMOXICILLIN [Suspect]
     Active Substance: AMOXICILLIN
     Route: 048
  8. AMOXICILLIN [Suspect]
     Active Substance: AMOXICILLIN
  9. FUROSEMIDE [Suspect]
     Active Substance: FUROSEMIDE
     Indication: Oedema
     Route: 048
  10. FUROSEMIDE [Suspect]
     Active Substance: FUROSEMIDE
     Indication: Coronary artery insufficiency
  11. FUROSEMIDE [Suspect]
     Active Substance: FUROSEMIDE
  12. FUROSEMIDE [Suspect]
     Active Substance: FUROSEMIDE
     Route: 048
  13. FUROSEMIDE [Suspect]
     Active Substance: FUROSEMIDE
     Dosage: 80 MILLIGRAM, QD
     Route: 048
     Dates: start: 19981107
  14. FUROSEMIDE [Suspect]
     Active Substance: FUROSEMIDE
     Dosage: 80 MILLIGRAM, QD
     Dates: start: 19981107
  15. FUROSEMIDE [Suspect]
     Active Substance: FUROSEMIDE
     Dosage: 80 MILLIGRAM, QD
     Dates: start: 19981107
  16. FUROSEMIDE [Suspect]
     Active Substance: FUROSEMIDE
     Dosage: 80 MILLIGRAM, QD
     Route: 048
     Dates: start: 19981107
  17. FUROSEMIDE [Suspect]
     Active Substance: FUROSEMIDE
     Dosage: 40 MILLIGRAM, QD
     Route: 048
     Dates: end: 19981107
  18. FUROSEMIDE [Suspect]
     Active Substance: FUROSEMIDE
     Dosage: 40 MILLIGRAM, QD
     Route: 048
     Dates: end: 19981107
  19. FUROSEMIDE [Suspect]
     Active Substance: FUROSEMIDE
     Dosage: 40 MILLIGRAM, QD
     Dates: end: 19981107
  20. FUROSEMIDE [Suspect]
     Active Substance: FUROSEMIDE
     Dosage: 40 MILLIGRAM, QD
     Dates: end: 19981107
  21. FLUVASTATIN SODIUM [Suspect]
     Active Substance: FLUVASTATIN SODIUM
     Indication: Hypercholesterolaemia
     Dosage: 40 MILLIGRAM, QD
     Dates: start: 19981023, end: 19981106
  22. FLUVASTATIN SODIUM [Suspect]
     Active Substance: FLUVASTATIN SODIUM
     Dosage: 40 MILLIGRAM, QD
     Route: 048
     Dates: start: 19981023, end: 19981106
  23. FLUVASTATIN SODIUM [Suspect]
     Active Substance: FLUVASTATIN SODIUM
     Dosage: 40 MILLIGRAM, QD
     Route: 048
     Dates: start: 19981023, end: 19981106
  24. FLUVASTATIN SODIUM [Suspect]
     Active Substance: FLUVASTATIN SODIUM
     Dosage: 40 MILLIGRAM, QD
     Dates: start: 19981023, end: 19981106
  25. ASPIRIN [Suspect]
     Active Substance: ASPIRIN
     Indication: Coronary artery disease
     Dosage: 50 MILLIGRAM, QD
  26. ASPIRIN [Suspect]
     Active Substance: ASPIRIN
     Dosage: 50 MILLIGRAM, QD
     Route: 048
  27. ASPIRIN [Suspect]
     Active Substance: ASPIRIN
     Dosage: 50 MILLIGRAM, QD
     Route: 048
  28. ASPIRIN [Suspect]
     Active Substance: ASPIRIN
     Dosage: 50 MILLIGRAM, QD
  29. FUROSEMIDE [Suspect]
     Active Substance: FUROSEMIDE
     Indication: Oedema
     Dosage: 2 DOSAGE FORM, QD
     Dates: end: 19981106
  30. FUROSEMIDE [Suspect]
     Active Substance: FUROSEMIDE
     Dosage: 2 DOSAGE FORM, QD
     Route: 048
     Dates: end: 19981106
  31. FUROSEMIDE [Suspect]
     Active Substance: FUROSEMIDE
     Dosage: 2 DOSAGE FORM, QD
     Route: 048
     Dates: end: 19981106
  32. FUROSEMIDE [Suspect]
     Active Substance: FUROSEMIDE
     Dosage: 2 DOSAGE FORM, QD
     Dates: end: 19981106
  33. MCP [Suspect]
     Active Substance: METOCLOPRAMIDE HYDROCHLORIDE
     Indication: Illness
  34. MCP [Suspect]
     Active Substance: METOCLOPRAMIDE HYDROCHLORIDE
     Route: 042
  35. MCP [Suspect]
     Active Substance: METOCLOPRAMIDE HYDROCHLORIDE
     Route: 042
  36. MCP [Suspect]
     Active Substance: METOCLOPRAMIDE HYDROCHLORIDE
  37. NITROGLYCERIN [Suspect]
     Active Substance: NITROGLYCERIN
     Indication: Angina pectoris
     Route: 042
     Dates: start: 19981107, end: 19981108
  38. NITROGLYCERIN [Suspect]
     Active Substance: NITROGLYCERIN
     Dates: start: 19981107, end: 19981108
  39. NITROGLYCERIN [Suspect]
     Active Substance: NITROGLYCERIN
     Dates: start: 19981107, end: 19981108
  40. NITROGLYCERIN [Suspect]
     Active Substance: NITROGLYCERIN
     Route: 042
     Dates: start: 19981107, end: 19981108
  41. NITROGLYCERIN [Suspect]
     Active Substance: NITROGLYCERIN
     Route: 042
     Dates: start: 19981107, end: 19981108
  42. NITROGLYCERIN [Suspect]
     Active Substance: NITROGLYCERIN
     Dates: start: 19981107, end: 19981108
  43. NITROGLYCERIN [Suspect]
     Active Substance: NITROGLYCERIN
     Dates: start: 19981107, end: 19981108
  44. NITROGLYCERIN [Suspect]
     Active Substance: NITROGLYCERIN
     Route: 042
     Dates: start: 19981107, end: 19981108
  45. NITROGLYCERIN [Suspect]
     Active Substance: NITROGLYCERIN
     Indication: Angina pectoris
     Dates: start: 19981107, end: 19981107
  46. NITROGLYCERIN [Suspect]
     Active Substance: NITROGLYCERIN
     Dates: start: 19981107, end: 19981107
  47. NITROGLYCERIN [Suspect]
     Active Substance: NITROGLYCERIN
     Route: 048
     Dates: start: 19981107, end: 19981107
  48. NITROGLYCERIN [Suspect]
     Active Substance: NITROGLYCERIN
     Route: 048
     Dates: start: 19981107, end: 19981107
  49. NITROGLYCERIN [Suspect]
     Active Substance: NITROGLYCERIN
     Dosage: UNK, BID
     Dates: start: 19981109
  50. NITROGLYCERIN [Suspect]
     Active Substance: NITROGLYCERIN
     Dosage: UNK, BID
     Dates: start: 19981109
  51. NITROGLYCERIN [Suspect]
     Active Substance: NITROGLYCERIN
     Dosage: UNK, BID
     Route: 048
     Dates: start: 19981109
  52. NITROGLYCERIN [Suspect]
     Active Substance: NITROGLYCERIN
     Dosage: UNK, BID
     Route: 048
     Dates: start: 19981109
  53. HEPARIN [Suspect]
     Active Substance: HEPARIN SODIUM
     Indication: Thrombosis
     Dates: start: 19981107, end: 19981109
  54. HEPARIN [Suspect]
     Active Substance: HEPARIN SODIUM
     Dates: start: 19981107, end: 19981109
  55. HEPARIN [Suspect]
     Active Substance: HEPARIN SODIUM
     Route: 042
     Dates: start: 19981107, end: 19981109
  56. HEPARIN [Suspect]
     Active Substance: HEPARIN SODIUM
     Route: 042
     Dates: start: 19981107, end: 19981109
  57. HEPARIN [Suspect]
     Active Substance: HEPARIN SODIUM
     Dates: start: 19981107, end: 19981107
  58. HEPARIN [Suspect]
     Active Substance: HEPARIN SODIUM
     Dates: start: 19981107, end: 19981107
  59. HEPARIN [Suspect]
     Active Substance: HEPARIN SODIUM
     Route: 058
     Dates: start: 19981107, end: 19981107
  60. HEPARIN [Suspect]
     Active Substance: HEPARIN SODIUM
     Route: 058
     Dates: start: 19981107, end: 19981107
  61. ACETAMINOPHEN [Suspect]
     Active Substance: ACETAMINOPHEN
     Indication: Pyrexia
     Dates: start: 19981108, end: 19981109
  62. ACETAMINOPHEN [Suspect]
     Active Substance: ACETAMINOPHEN
     Route: 054
     Dates: start: 19981108, end: 19981109
  63. ACETAMINOPHEN [Suspect]
     Active Substance: ACETAMINOPHEN
     Route: 054
     Dates: start: 19981108, end: 19981109
  64. ACETAMINOPHEN [Suspect]
     Active Substance: ACETAMINOPHEN
     Dates: start: 19981108, end: 19981109
  65. ISOSORBIDE DINITRATE [Suspect]
     Active Substance: ISOSORBIDE DINITRATE
     Indication: Coronary artery disease
     Dosage: 40 MILLIGRAM, QD (20 MG, BID 08-NOV-1998 00:00)
     Route: 048
     Dates: start: 19981108
  66. ISOSORBIDE DINITRATE [Suspect]
     Active Substance: ISOSORBIDE DINITRATE
     Dosage: 40 MILLIGRAM, QD (20 MG, BID 08-NOV-1998 00:00)
     Dates: start: 19981108
  67. ISOSORBIDE DINITRATE [Suspect]
     Active Substance: ISOSORBIDE DINITRATE
     Dosage: 40 MILLIGRAM, QD (20 MG, BID 08-NOV-1998 00:00)
     Dates: start: 19981108
  68. ISOSORBIDE DINITRATE [Suspect]
     Active Substance: ISOSORBIDE DINITRATE
     Dosage: 40 MILLIGRAM, QD (20 MG, BID 08-NOV-1998 00:00)
     Route: 048
     Dates: start: 19981108
  69. ISOSORBIDE DINITRATE [Suspect]
     Active Substance: ISOSORBIDE DINITRATE
     Dosage: 60 MILLIGRAM, QD
     Route: 048
     Dates: start: 19981108
  70. ISOSORBIDE DINITRATE [Suspect]
     Active Substance: ISOSORBIDE DINITRATE
     Dosage: 60 MILLIGRAM, QD
     Dates: start: 19981108
  71. ISOSORBIDE DINITRATE [Suspect]
     Active Substance: ISOSORBIDE DINITRATE
     Dosage: 60 MILLIGRAM, QD
     Dates: start: 19981108
  72. ISOSORBIDE DINITRATE [Suspect]
     Active Substance: ISOSORBIDE DINITRATE
     Dosage: 60 MILLIGRAM, QD
     Route: 048
     Dates: start: 19981108
  73. ACETAMINOPHEN\CAFFEINE\PROPYPHENAZONE [Suspect]
     Active Substance: ACETAMINOPHEN\CAFFEINE\PROPYPHENAZONE
     Indication: Pain
     Dosage: 20 DROPS/ DAY, QD
     Dates: start: 19981107, end: 19981107
  74. ACETAMINOPHEN\CAFFEINE\PROPYPHENAZONE [Suspect]
     Active Substance: ACETAMINOPHEN\CAFFEINE\PROPYPHENAZONE
     Dosage: 20 DROPS/ DAY, QD
     Route: 048
     Dates: start: 19981107, end: 19981107
  75. ACETAMINOPHEN\CAFFEINE\PROPYPHENAZONE [Suspect]
     Active Substance: ACETAMINOPHEN\CAFFEINE\PROPYPHENAZONE
     Dosage: 20 DROPS/ DAY, QD
     Route: 048
     Dates: start: 19981107, end: 19981107
  76. ACETAMINOPHEN\CAFFEINE\PROPYPHENAZONE [Suspect]
     Active Substance: ACETAMINOPHEN\CAFFEINE\PROPYPHENAZONE
     Dosage: 20 DROPS/ DAY, QD
     Dates: start: 19981107, end: 19981107
  77. MOLSIDOMINE [Suspect]
     Active Substance: MOLSIDOMINE
     Indication: Coronary artery disease
     Route: 048
  78. MOLSIDOMINE [Suspect]
     Active Substance: MOLSIDOMINE
  79. MOLSIDOMINE [Suspect]
     Active Substance: MOLSIDOMINE
  80. MOLSIDOMINE [Suspect]
     Active Substance: MOLSIDOMINE
     Route: 048
  81. MOLSIDOMINE [Suspect]
     Active Substance: MOLSIDOMINE
     Dosage: 8 MILLIGRAM, QD
     Route: 048
     Dates: start: 19981108
  82. MOLSIDOMINE [Suspect]
     Active Substance: MOLSIDOMINE
     Dosage: 8 MILLIGRAM, QD
     Dates: start: 19981108
  83. MOLSIDOMINE [Suspect]
     Active Substance: MOLSIDOMINE
     Dosage: 8 MILLIGRAM, QD
     Dates: start: 19981108
  84. MOLSIDOMINE [Suspect]
     Active Substance: MOLSIDOMINE
     Dosage: 8 MILLIGRAM, QD
     Route: 048
     Dates: start: 19981108
  85. MCP [Suspect]
     Active Substance: METOCLOPRAMIDE HYDROCHLORIDE
     Indication: Illness
  86. MCP [Suspect]
     Active Substance: METOCLOPRAMIDE HYDROCHLORIDE
     Route: 048
  87. MCP [Suspect]
     Active Substance: METOCLOPRAMIDE HYDROCHLORIDE
     Route: 048
  88. MCP [Suspect]
     Active Substance: METOCLOPRAMIDE HYDROCHLORIDE
  89. ACETYLCYSTEINE [Suspect]
     Active Substance: ACETYLCYSTEINE
     Indication: Cough
     Dosage: 20 DROPS, QD (PER DAY)
     Dates: start: 19981109, end: 19981109
  90. ACETYLCYSTEINE [Suspect]
     Active Substance: ACETYLCYSTEINE
     Dosage: 20 DROPS, QD (PER DAY)
     Route: 048
     Dates: start: 19981109, end: 19981109
  91. ACETYLCYSTEINE [Suspect]
     Active Substance: ACETYLCYSTEINE
     Dosage: 20 DROPS, QD (PER DAY)
     Route: 048
     Dates: start: 19981109, end: 19981109
  92. ACETYLCYSTEINE [Suspect]
     Active Substance: ACETYLCYSTEINE
     Dosage: 20 DROPS, QD (PER DAY)
     Dates: start: 19981109, end: 19981109
  93. URAPIDIL [Suspect]
     Active Substance: URAPIDIL
     Indication: Angina pectoris
     Dates: start: 19981107, end: 19981107
  94. URAPIDIL [Suspect]
     Active Substance: URAPIDIL
     Route: 042
     Dates: start: 19981107, end: 19981107
  95. URAPIDIL [Suspect]
     Active Substance: URAPIDIL
     Route: 042
     Dates: start: 19981107, end: 19981107
  96. URAPIDIL [Suspect]
     Active Substance: URAPIDIL
     Dates: start: 19981107, end: 19981107
  97. FUROSEMIDE [Suspect]
     Active Substance: FUROSEMIDE
     Indication: Coronary artery insufficiency
  98. FUROSEMIDE [Suspect]
     Active Substance: FUROSEMIDE
     Route: 042
  99. FUROSEMIDE [Suspect]
     Active Substance: FUROSEMIDE
     Route: 042
  100. FUROSEMIDE [Suspect]
     Active Substance: FUROSEMIDE
  101. ACETYLCYSTEINE [Suspect]
     Active Substance: ACETYLCYSTEINE
     Indication: Mucosal inflammation
     Route: 048
  102. ACETYLCYSTEINE [Suspect]
     Active Substance: ACETYLCYSTEINE
     Indication: Cough
  103. ACETYLCYSTEINE [Suspect]
     Active Substance: ACETYLCYSTEINE
  104. ACETYLCYSTEINE [Suspect]
     Active Substance: ACETYLCYSTEINE
     Route: 048
  105. ACETYLCYSTEINE [Suspect]
     Active Substance: ACETYLCYSTEINE
     Route: 048
     Dates: start: 19981108, end: 19981109
  106. ACETYLCYSTEINE [Suspect]
     Active Substance: ACETYLCYSTEINE
     Dates: start: 19981108, end: 19981109
  107. ACETYLCYSTEINE [Suspect]
     Active Substance: ACETYLCYSTEINE
     Dates: start: 19981108, end: 19981109
  108. ACETYLCYSTEINE [Suspect]
     Active Substance: ACETYLCYSTEINE
     Route: 048
     Dates: start: 19981108, end: 19981109
  109. LASIX [Suspect]
     Active Substance: FUROSEMIDE
     Indication: Coronary artery insufficiency
     Dates: start: 19981107, end: 19981107
  110. LASIX [Suspect]
     Active Substance: FUROSEMIDE
     Route: 042
     Dates: start: 19981107, end: 19981107
  111. LASIX [Suspect]
     Active Substance: FUROSEMIDE
     Route: 042
     Dates: start: 19981107, end: 19981107
  112. LASIX [Suspect]
     Active Substance: FUROSEMIDE
     Dates: start: 19981107, end: 19981107
  113. ACTRAPID [Suspect]
     Active Substance: INSULIN HUMAN
     Indication: Diabetes mellitus
     Dosage: 70 INTERNATIONAL UNIT, QD (REPORTED: 6 - 52 IU/DAY)
     Dates: start: 19981107, end: 19981107
  114. ACTRAPID [Suspect]
     Active Substance: INSULIN HUMAN
     Dosage: 70 INTERNATIONAL UNIT, QD (REPORTED: 6 - 52 IU/DAY)
     Route: 042
     Dates: start: 19981107, end: 19981107
  115. ACTRAPID [Suspect]
     Active Substance: INSULIN HUMAN
     Dosage: 70 INTERNATIONAL UNIT, QD (REPORTED: 6 - 52 IU/DAY)
     Route: 042
     Dates: start: 19981107, end: 19981107
  116. ACTRAPID [Suspect]
     Active Substance: INSULIN HUMAN
     Dosage: 70 INTERNATIONAL UNIT, QD (REPORTED: 6 - 52 IU/DAY)
     Dates: start: 19981107, end: 19981107
  117. ALLOPURINOL [Suspect]
     Active Substance: ALLOPURINOL
     Indication: Hyperuricaemia
     Dates: start: 19980925, end: 19981106
  118. ALLOPURINOL [Suspect]
     Active Substance: ALLOPURINOL
     Route: 048
     Dates: start: 19980925, end: 19981106
  119. ALLOPURINOL [Suspect]
     Active Substance: ALLOPURINOL
     Route: 048
     Dates: start: 19980925, end: 19981106
  120. ALLOPURINOL [Suspect]
     Active Substance: ALLOPURINOL
     Dates: start: 19980925, end: 19981106
  121. MORPHINE [Suspect]
     Active Substance: MORPHINE
     Indication: Pain
     Dates: start: 19981107, end: 19981107
  122. MORPHINE [Suspect]
     Active Substance: MORPHINE
     Route: 042
     Dates: start: 19981107, end: 19981107
  123. MORPHINE [Suspect]
     Active Substance: MORPHINE
     Route: 042
     Dates: start: 19981107, end: 19981107
  124. MORPHINE [Suspect]
     Active Substance: MORPHINE
     Dates: start: 19981107, end: 19981107
  125. ASPIRIN LYSINE [Suspect]
     Active Substance: ASPIRIN LYSINE
     Indication: Angina pectoris
     Dates: start: 19981107, end: 19981107
  126. ASPIRIN LYSINE [Suspect]
     Active Substance: ASPIRIN LYSINE
     Route: 042
     Dates: start: 19981107, end: 19981107
  127. ASPIRIN LYSINE [Suspect]
     Active Substance: ASPIRIN LYSINE
     Route: 042
     Dates: start: 19981107, end: 19981107
  128. ASPIRIN LYSINE [Suspect]
     Active Substance: ASPIRIN LYSINE
     Dates: start: 19981107, end: 19981107
  129. PANTOZOL [Suspect]
     Active Substance: PANTOPRAZOLE SODIUM
     Indication: Gastric ulcer
  130. PANTOZOL [Suspect]
     Active Substance: PANTOPRAZOLE SODIUM
     Route: 048
  131. PANTOZOL [Suspect]
     Active Substance: PANTOPRAZOLE SODIUM
     Route: 048
  132. PANTOZOL [Suspect]
     Active Substance: PANTOPRAZOLE SODIUM
  133. CARVEDILOL [Concomitant]
     Active Substance: CARVEDILOL
     Indication: Hypertension
  134. CARVEDILOL [Concomitant]
     Active Substance: CARVEDILOL
     Route: 048
  135. CARVEDILOL [Concomitant]
     Active Substance: CARVEDILOL
     Route: 048
  136. CARVEDILOL [Concomitant]
     Active Substance: CARVEDILOL
  137. Ismn basics [Concomitant]
     Indication: Coronary artery disease
     Dosage: 60 MILLIGRAM, QD
     Dates: end: 19981106
  138. Ismn basics [Concomitant]
     Dosage: 60 MILLIGRAM, QD
     Route: 048
     Dates: end: 19981106
  139. Ismn basics [Concomitant]
     Dosage: 60 MILLIGRAM, QD
     Route: 048
     Dates: end: 19981106
  140. Ismn basics [Concomitant]
     Dosage: 60 MILLIGRAM, QD
     Dates: end: 19981106
  141. INSULIN NOS [Concomitant]
     Active Substance: INSULIN NOS
     Indication: Diabetes mellitus
     Dosage: 70 INTERNATIONAL UNIT, QD
  142. INSULIN NOS [Concomitant]
     Active Substance: INSULIN NOS
     Dosage: 70 INTERNATIONAL UNIT, QD
     Route: 058
  143. INSULIN NOS [Concomitant]
     Active Substance: INSULIN NOS
     Dosage: 70 INTERNATIONAL UNIT, QD
     Route: 058
  144. INSULIN NOS [Concomitant]
     Active Substance: INSULIN NOS
     Dosage: 70 INTERNATIONAL UNIT, QD
  145. MOLSIDOMINE [Concomitant]
     Active Substance: MOLSIDOMINE
     Indication: Coronary artery disease
     Dosage: 8 MILLIGRAM, QD
     Dates: end: 19981106
  146. MOLSIDOMINE [Concomitant]
     Active Substance: MOLSIDOMINE
     Dosage: 8 MILLIGRAM, QD
     Route: 048
     Dates: end: 19981106
  147. MOLSIDOMINE [Concomitant]
     Active Substance: MOLSIDOMINE
     Dosage: 8 MILLIGRAM, QD
     Route: 048
     Dates: end: 19981106
  148. MOLSIDOMINE [Concomitant]
     Active Substance: MOLSIDOMINE
     Dosage: 8 MILLIGRAM, QD
     Dates: end: 19981106

REACTIONS (11)
  - Skin disorder [Unknown]
  - Leukocytosis [Unknown]
  - Ocular hyperaemia [Unknown]
  - Blood creatinine increased [Unknown]
  - Blood urea increased [Unknown]
  - Pyrexia [Unknown]
  - Stevens-Johnson syndrome [Recovered/Resolved]
  - Erythema multiforme [Recovered/Resolved]
  - Rash [Unknown]
  - Oral mucosal eruption [Unknown]
  - Pruritus [Unknown]

NARRATIVE: CASE EVENT DATE: 19981108
